FAERS Safety Report 18485982 (Version 1)
Quarter: 2020Q4

REPORT INFORMATION
  Report Type: Spontaneous
  Country: US (occurrence: US)
  Receive Date: 20201110
  Receipt Date: 20201110
  Transmission Date: 20210114
  Serious: No
  Sender: FDA-Public Use
  Company Number: None

PATIENT
  Age: 83 Year
  Sex: Female

DRUGS (1)
  1. AMBRISENTAN 5MG ACTAVIS PHARMA [Suspect]
     Active Substance: AMBRISENTAN
     Indication: PULMONARY ARTERIAL HYPERTENSION
     Route: 048
     Dates: start: 20200825

REACTIONS (6)
  - Abdominal distension [None]
  - Peripheral swelling [None]
  - Weight increased [None]
  - Fluid retention [None]
  - Discomfort [None]
  - Faeces discoloured [None]

NARRATIVE: CASE EVENT DATE: 202010
